FAERS Safety Report 25473332 (Version 3)
Quarter: 2025Q2

REPORT INFORMATION
  Report Type: Spontaneous
  Country: FR (occurrence: FR)
  Receive Date: 20250624
  Receipt Date: 20250630
  Transmission Date: 20250717
  Serious: Yes (Death, Hospitalization, Other)
  Sender: PFIZER
  Company Number: FR-BIOVITRUM-2025-FR-005181

PATIENT
  Sex: Male

DRUGS (16)
  1. PANTOPRAZOLE [Suspect]
     Active Substance: PANTOPRAZOLE
     Dosage: 40 MG, 1X/DAY (IN EVENING)
  2. METHYLPREDNISOLONE [Suspect]
     Active Substance: METHYLPREDNISOLONE
  3. APIXABAN [Suspect]
     Active Substance: APIXABAN
     Dosage: 5 MG, 2X/DAY (MORNING AND EVENING)
  4. PEGCETACOPLAN [Suspect]
     Active Substance: PEGCETACOPLAN
     Indication: Paroxysmal nocturnal haemoglobinuria
     Route: 058
     Dates: start: 202311
  5. DEFERASIROX [Suspect]
     Active Substance: DEFERASIROX
     Dosage: 360 MG, 4X/DAY
  6. PENICILLIN V [Suspect]
     Active Substance: PENICILLIN V
  7. AMOBARBITAL\BELLADONNA LEAF\DIMETHICONE\ERGOTAMINE TARTRATE [Suspect]
     Active Substance: AMOBARBITAL\BELLADONNA LEAF\DIMETHICONE\ERGOTAMINE TARTRATE
     Dosage: UNK, 2X/DAY (NOON AND EVENING)
  8. POTASSIUM CHLORIDE [Suspect]
     Active Substance: POTASSIUM CHLORIDE
     Dosage: UNK, 3X/DAY
  9. URSODIOL [Suspect]
     Active Substance: URSODIOL
     Dosage: 500 MG, 2X/DAY
  10. URSODIOL [Suspect]
     Active Substance: URSODIOL
     Dosage: 500 MG, 2X/DAY
  11. PREDNISONE [Suspect]
     Active Substance: PREDNISONE
  12. PENICILLIN V [Suspect]
     Active Substance: PENICILLIN V
  13. INFLIXIMAB [Suspect]
     Active Substance: INFLIXIMAB
  14. DOMPERIDONE [Suspect]
     Active Substance: DOMPERIDONE
  15. METOCLOPRAMIDE [Suspect]
     Active Substance: METOCLOPRAMIDE
  16. ONDANSETRON HYDROCHLORIDE [Suspect]
     Active Substance: ONDANSETRON HYDROCHLORIDE

REACTIONS (12)
  - Septic shock [Fatal]
  - Escherichia infection [Fatal]
  - Campylobacter infection [Fatal]
  - Myelodysplastic syndrome [Fatal]
  - Gene mutation [Fatal]
  - Multiple organ dysfunction syndrome [Fatal]
  - Crohn^s disease [Fatal]
  - Pulmonary embolism [Fatal]
  - Splenic embolism [Fatal]
  - Thrombocytopenia [Fatal]
  - Acute kidney injury [Fatal]
  - Drug ineffective [Unknown]
